FAERS Safety Report 25017148 (Version 1)
Quarter: 2025Q1

REPORT INFORMATION
  Report Type: Spontaneous
  Country: FR (occurrence: FR)
  Receive Date: 20250227
  Receipt Date: 20250227
  Transmission Date: 20250408
  Serious: Yes (Other)
  Sender: RANBAXY
  Company Number: FR-AFSSAPS-DJ2024001207

PATIENT
  Age: 50 Year
  Sex: Female

DRUGS (1)
  1. MORPHINE [Suspect]
     Active Substance: MORPHINE
     Indication: Palliative care
     Route: 040
     Dates: start: 20240902, end: 202409

REACTIONS (2)
  - Burning sensation [Recovered/Resolved]
  - Wrong dose [Recovered/Resolved]
